FAERS Safety Report 8063556-6 (Version None)
Quarter: 2012Q1

REPORT INFORMATION
  Report Type: 
  Country: None (occurrence: None)
  Receive Date: 20120123
  Receipt Date: 20120111
  Transmission Date: 20120608
  Serious: Yes (Hospitalization, Disabling)
  Sender: FDA-Public Use
  Company Number: FR-TEVA-317872ISR

PATIENT
  Age: 52 Year
  Sex: Male

DRUGS (7)
  1. PRAVASTATIN [Concomitant]
     Dosage: ONE PHARMACEUTICAL FORM
  2. VESANOID [Suspect]
     Indication: ACUTE PROMYELOCYTIC LEUKAEMIA
     Dates: start: 20111005
  3. CORDARONE [Concomitant]
     Dosage: 1 TABLET;
  4. PREVISCAN [Concomitant]
  5. MYOLASTAN [Concomitant]
  6. TRISENOX [Suspect]
     Indication: ACUTE PROMYELOCYTIC LEUKAEMIA
     Dates: start: 20111017
  7. LIORESA [Concomitant]
     Dosage: 6 TABLET;

REACTIONS (1)
  - DEAFNESS [None]
